FAERS Safety Report 11410850 (Version 1)
Quarter: 2015Q3

REPORT INFORMATION
  Report Type: Spontaneous
  Country: US (occurrence: US)
  Receive Date: 20150821
  Receipt Date: 20150821
  Transmission Date: 20151125
  Serious: No
  Sender: FDA-Public Use
  Company Number: US-ELI_LILLY_AND_COMPANY-US201001004023

PATIENT
  Sex: Female

DRUGS (7)
  1. HUMULIN N [Suspect]
     Active Substance: INSULIN HUMAN
     Indication: DIABETES MELLITUS
     Dosage: 63 U, 2/D
  2. HUMULIN N [Suspect]
     Active Substance: INSULIN HUMAN
     Dosage: 63 U, 2/D
  3. HUMULIN N [Suspect]
     Active Substance: INSULIN HUMAN
     Dosage: 63 U, 2/D
  4. HUMULIN N [Suspect]
     Active Substance: INSULIN HUMAN
     Dosage: 63 U, 2/D
  5. HUMULIN N [Suspect]
     Active Substance: INSULIN HUMAN
     Dosage: 63 U, 2/D
  6. HUMULIN N [Suspect]
     Active Substance: INSULIN HUMAN
     Dosage: 63 U, 2/D
  7. HUMULIN N [Suspect]
     Active Substance: INSULIN HUMAN
     Dosage: 63 U, 2/D

REACTIONS (6)
  - Blood glucose increased [Not Recovered/Not Resolved]
  - Blood glucose increased [Not Recovered/Not Resolved]
  - Visual impairment [Not Recovered/Not Resolved]
  - Drug ineffective [Not Recovered/Not Resolved]
  - Dry mouth [Not Recovered/Not Resolved]
  - Urine odour abnormal [Not Recovered/Not Resolved]

NARRATIVE: CASE EVENT DATE: 2007
